FAERS Safety Report 6509484-6 (Version None)
Quarter: 2009Q4

REPORT INFORMATION
  Report Type: 
  Country: None (occurrence: None)
  Receive Date: 20091222
  Receipt Date: 20091216
  Transmission Date: 20100525
  Serious: Yes (Hospitalization)
  Sender: FDA-Public Use
  Company Number: US-BRISTOL-MYERS SQUIBB COMPANY-14680441

PATIENT
  Age: 65 Year
  Sex: Female
  Weight: 70 kg

DRUGS (10)
  1. IXEMPRA KIT [Suspect]
     Indication: RENAL CELL CARCINOMA
     Dosage: INITIAL DOSE ON 31MAR09. 6MG/M2 OVER 1HR ON DAY1-5 LAST DOSE:CYCLE-4,DAY2 TOTAL DOSE:21.4MG
     Route: 042
     Dates: start: 20090331, end: 20090609
  2. DECADRON [Concomitant]
     Dosage: CYCLE-4,DAY-2
     Dates: start: 20090609
  3. ASPIRIN [Concomitant]
  4. DIPHENHYDRAMINE HCL [Concomitant]
     Indication: PREMEDICATION
     Dosage: DIPHENHYDRAMINE PRE CHEMO
  5. RANITIDINE [Concomitant]
     Indication: PREMEDICATION
     Dosage: RANITIDINE PRE CHEMO
  6. SYNTHROID [Concomitant]
  7. ACTIVASE [Concomitant]
     Dosage: TO PORT HOURS PRIOR TO EVENT
     Dates: start: 20090609
  8. TENORMIN [Concomitant]
  9. VANCOMYCIN [Concomitant]
  10. ZOSYN [Concomitant]
     Route: 042

REACTIONS (8)
  - HEADACHE [None]
  - HYPERTENSION [None]
  - INFECTION [None]
  - PAPILLOEDEMA [None]
  - PNEUMONIA [None]
  - REVERSIBLE POSTERIOR LEUKOENCEPHALOPATHY SYNDROME [None]
  - VISION BLURRED [None]
  - VOMITING [None]
